FAERS Safety Report 4955021-7 (Version None)
Quarter: 2006Q1

REPORT INFORMATION
  Report Type: 
  Country: None (occurrence: None)
  Receive Date: 20060322
  Receipt Date: 20060307
  Transmission Date: 20060701
  Serious: Yes (Other)
  Sender: FDA-Public Use
  Company Number: 200511272BWH

PATIENT
  Sex: 0

DRUGS (1)
  1. LEVITRA [Suspect]

REACTIONS (1)
  - BLINDNESS TRANSIENT [None]
